FAERS Safety Report 11702306 (Version 1)
Quarter: 2015Q4

REPORT INFORMATION
  Report Type: Spontaneous
  Country: US (occurrence: US)
  Receive Date: 20151105
  Receipt Date: 20151105
  Transmission Date: 20160304
  Serious: Yes (Other)
  Sender: FDA-Public Use
  Company Number: US-ASTRAZENECA-2013SE77087

PATIENT
  Age: 14715 Day
  Sex: Male
  Weight: 61.2 kg

DRUGS (21)
  1. BYETTA [Suspect]
     Active Substance: EXENATIDE
     Indication: TYPE 2 DIABETES MELLITUS
     Route: 065
     Dates: start: 200803, end: 201203
  2. LEVEMIR [Concomitant]
     Active Substance: INSULIN DETEMIR
  3. AVELOX [Concomitant]
     Active Substance: MOXIFLOXACIN HYDROCHLORIDE
     Route: 048
  4. DIAZEPAM. [Concomitant]
     Active Substance: DIAZEPAM
     Route: 065
  5. BYETTA [Suspect]
     Active Substance: EXENATIDE
     Indication: TYPE 2 DIABETES MELLITUS
     Dosage: UNK
     Route: 065
     Dates: start: 2011, end: 2011
  6. GLIPIZIDE. [Concomitant]
     Active Substance: GLIPIZIDE
     Route: 048
  7. FORTAMET [Concomitant]
     Active Substance: METFORMIN HYDROCHLORIDE
     Route: 048
  8. ZYRTEC [Concomitant]
     Active Substance: CETIRIZINE HYDROCHLORIDE
     Route: 065
  9. SONATA [Concomitant]
     Active Substance: ZALEPLON
     Route: 065
  10. LOVAZA [Concomitant]
     Active Substance: OMEGA-3-ACID ETHYL ESTERS
     Route: 065
  11. SYNTHROID [Concomitant]
     Active Substance: LEVOTHYROXINE SODIUM
  12. LIPITOR [Concomitant]
     Active Substance: ATORVASTATIN CALCIUM
     Route: 065
  13. ASPIRIN. [Concomitant]
     Active Substance: ASPIRIN
     Route: 048
  14. PREVACID [Concomitant]
     Active Substance: LANSOPRAZOLE
     Route: 048
     Dates: start: 20010404
  15. MEPERIDINE [Concomitant]
     Active Substance: MEPERIDINE
     Route: 065
  16. BYETTA [Suspect]
     Active Substance: EXENATIDE
     Indication: TYPE 2 DIABETES MELLITUS
     Dosage: 10MCG/0.04 ML TWO TIMES A DAY
     Route: 065
     Dates: start: 20100616
  17. AVAPRO [Concomitant]
     Active Substance: IRBESARTAN
     Route: 048
  18. NOVOLOG [Concomitant]
     Active Substance: INSULIN ASPART
  19. TRICOR [Concomitant]
     Active Substance: FENOFIBRATE
     Route: 065
  20. PREDNISONE. [Concomitant]
     Active Substance: PREDNISONE
     Route: 048
  21. CRESTOR [Concomitant]
     Active Substance: ROSUVASTATIN CALCIUM
     Route: 048

REACTIONS (5)
  - Goitre [Unknown]
  - Papillary thyroid cancer [Unknown]
  - Hypothyroidism [Unknown]
  - Autoimmune thyroiditis [Unknown]
  - Autoimmune thyroiditis [Unknown]

NARRATIVE: CASE EVENT DATE: 20100623
